FAERS Safety Report 5731374-7 (Version None)
Quarter: 2008Q2

REPORT INFORMATION
  Report Type: 
  Country: None (occurrence: None)
  Receive Date: 20080508
  Receipt Date: 20080428
  Transmission Date: 20081010
  Serious: Yes (Other)
  Sender: FDA-Public Use
  Company Number: HQWYE853722AUG06

PATIENT
  Sex: Female

DRUGS (6)
  1. PREMPHASE 14/14 [Suspect]
  2. ESTRADERM [Suspect]
     Dosage: UNKNOWN
     Route: 062
  3. CLIMARA [Suspect]
  4. ORTHO-EST [Suspect]
  5. PROVERA [Suspect]
  6. CONJUGATED ESTROGENS [Suspect]

REACTIONS (1)
  - BREAST CANCER METASTATIC [None]
